FAERS Safety Report 15201525 (Version 1)
Quarter: 2018Q3

REPORT INFORMATION
  Report Type: Spontaneous
  Country: RU (occurrence: RU)
  Receive Date: 20180726
  Receipt Date: 20180726
  Transmission Date: 20181010
  Serious: Yes (Other)
  Sender: FDA-Public Use
  Company Number: RU-SA-2018SA176302

PATIENT
  Age: 63 Year
  Sex: Female
  Weight: 73 kg

DRUGS (2)
  1. LANTUS SOLOSTAR [Suspect]
     Active Substance: INSULIN GLARGINE
     Indication: TYPE 2 DIABETES MELLITUS
     Route: 058
  2. THIOCTIC ACID [Concomitant]
     Active Substance: THIOCTIC ACID
     Indication: DIABETIC NEUROPATHY
     Route: 065

REACTIONS (8)
  - Dry mouth [Unknown]
  - Visual impairment [Unknown]
  - Hypoglycaemia [Unknown]
  - Drug therapeutic incompatibility [Unknown]
  - Drug effect incomplete [Unknown]
  - Pruritus [Unknown]
  - Angina pectoris [Unknown]
  - Muscle spasms [Unknown]
